FAERS Safety Report 23333310 (Version 1)
Quarter: 2023Q4

REPORT INFORMATION
  Report Type: Spontaneous
  Country: US (occurrence: US)
  Receive Date: 20231222
  Receipt Date: 20231222
  Transmission Date: 20240109
  Serious: No
  Sender: FDA-Public Use
  Company Number: US-CTI BIOPHARMA-2023US04142

PATIENT

DRUGS (7)
  1. VONJO [Suspect]
     Active Substance: PACRITINIB
     Indication: Myelodysplastic syndrome
     Dosage: 100 MG, BID
     Route: 048
     Dates: start: 20230918
  2. VONJO [Suspect]
     Active Substance: PACRITINIB
     Dosage: 100 MG, 1 DOSE PER 1 D, ONLY TAKING 1 AT NIGHT
     Route: 048
     Dates: start: 20230918
  3. ELIQUIS [Concomitant]
     Active Substance: APIXABAN
  4. DEFERASIROX [Concomitant]
     Active Substance: DEFERASIROX
  5. ESCITALOPRAM [Concomitant]
     Active Substance: ESCITALOPRAM OXALATE
  6. COZAAR [Concomitant]
     Active Substance: LOSARTAN POTASSIUM
  7. TRAZODONE [Concomitant]
     Active Substance: TRAZODONE HYDROCHLORIDE

REACTIONS (7)
  - Memory impairment [Unknown]
  - Transfusion [Unknown]
  - Fatigue [Unknown]
  - Asthenia [Unknown]
  - Gait disturbance [Unknown]
  - Off label use [Unknown]
  - Full blood count decreased [Unknown]
